FAERS Safety Report 18724391 (Version 1)
Quarter: 2021Q1

REPORT INFORMATION
  Report Type: Report from Study
  Country: None (occurrence: DE)
  Receive Date: 20210111
  Receipt Date: 20210111
  Transmission Date: 20210419
  Serious: Yes (Hospitalization, Other)
  Sender: FDA-Public Use
  Company Number: DE-TAKEDA-DE201839703

PATIENT

DRUGS (8)
  1. TEDUGLUTIDE [Suspect]
     Active Substance: TEDUGLUTIDE
     Dosage: 0.22 MG/KG, 1X/DAY:QD
     Route: 058
     Dates: start: 20180803
  2. TEDUGLUTIDE [Suspect]
     Active Substance: TEDUGLUTIDE
     Dosage: 0.22 MG/KG, 1X/DAY:QD
     Route: 058
     Dates: start: 20180803
  3. TEDUGLUTIDE [Suspect]
     Active Substance: TEDUGLUTIDE
     Indication: SHORT-BOWEL SYNDROME
     Dosage: 0.22 MG/KG, 1X/DAY:QD
     Route: 058
     Dates: start: 20180803
  4. TEDUGLUTIDE [Suspect]
     Active Substance: TEDUGLUTIDE
     Dosage: 0.22 MG/KG, 1X/DAY:QD
     Route: 058
     Dates: start: 20180803
  5. TEDUGLUTIDE [Suspect]
     Active Substance: TEDUGLUTIDE
     Dosage: 0.22 MG/KG, 1X/DAY:QD
     Route: 058
     Dates: start: 20180803
  6. TEDUGLUTIDE [Suspect]
     Active Substance: TEDUGLUTIDE
     Indication: SHORT-BOWEL SYNDROME
     Dosage: 0.22 MG/KG, 1X/DAY:QD
     Route: 058
     Dates: start: 20180803
  7. TEDUGLUTIDE [Suspect]
     Active Substance: TEDUGLUTIDE
     Indication: SHORT-BOWEL SYNDROME
     Dosage: 0.22 MG/KG, 1X/DAY:QD
     Route: 058
     Dates: start: 20180803
  8. TEDUGLUTIDE [Suspect]
     Active Substance: TEDUGLUTIDE
     Indication: SHORT-BOWEL SYNDROME
     Dosage: 0.22 MG/KG, 1X/DAY:QD
     Route: 058
     Dates: start: 20180803

REACTIONS (3)
  - Fluid retention [Recovered/Resolved]
  - Hypervolaemia [Recovered/Resolved]
  - Device related infection [Recovered/Resolved]

NARRATIVE: CASE EVENT DATE: 20181006
